FAERS Safety Report 6041141-5 (Version None)
Quarter: 2009Q1

REPORT INFORMATION
  Report Type: 
  Country: None (occurrence: None)
  Receive Date: 20090116
  Receipt Date: 20080903
  Transmission Date: 20090719
  Serious: No
  Sender: FDA-Public Use
  Company Number: US-BRISTOL-MYERS SQUIBB COMPANY-14322994

PATIENT
  Sex: Female

DRUGS (5)
  1. ABILIFY [Suspect]
  2. LIPITOR [Concomitant]
  3. ACTOS [Concomitant]
  4. LANTUS [Concomitant]
  5. PRANDIN [Concomitant]

REACTIONS (2)
  - AGGRESSION [None]
  - PARANOIA [None]
